FAERS Safety Report 4989854-8 (Version None)
Quarter: 2006Q2

REPORT INFORMATION
  Report Type: 
  Country: None (occurrence: None)
  Receive Date: 20060503
  Receipt Date: 20060427
  Transmission Date: 20061013
  Serious: Yes (Other)
  Sender: FDA-Public Use
  Company Number: GB-AVENTIS-200614592GDDC

PATIENT
  Age: 39 Year
  Sex: Male

DRUGS (1)
  1. CEFOTAXIME [Suspect]
     Indication: MENINGOCOCCAL SEPSIS
     Dosage: DOSE: UNK

REACTIONS (7)
  - ARTHRALGIA [None]
  - MALAISE [None]
  - NEUTROPENIA [None]
  - PYREXIA [None]
  - RED BLOOD CELL SEDIMENTATION RATE INCREASED [None]
  - SKIN HAEMORRHAGE [None]
  - VON WILLEBRAND'S DISEASE [None]
